FAERS Safety Report 9199849 (Version 1)
Quarter: 2013Q1

REPORT INFORMATION
  Report Type: Spontaneous
  Country: TR (occurrence: TR)
  Receive Date: 20130329
  Receipt Date: 20130329
  Transmission Date: 20140127
  Serious: Yes (Hospitalization)
  Sender: FDA-Public Use
  Company Number: TR-ELI_LILLY_AND_COMPANY-TR201301003797

PATIENT
  Age: 49 Year
  Sex: Female
  Weight: 102 kg

DRUGS (7)
  1. BYETTA [Suspect]
     Indication: DIABETES MELLITUS
     Dosage: 10 UG, UNK
     Dates: start: 20110328
  2. BYETTA [Suspect]
     Dosage: 10 UG, UNK
  3. BYETTA [Suspect]
     Dosage: 5 UG, UNK
     Dates: start: 20121219
  4. BYETTA [Suspect]
     Dosage: 10 UG, UNK
  5. METFORMINE [Concomitant]
     Indication: DIABETES MELLITUS
     Dosage: 1000 MG, BID
     Route: 048
  6. ATORVASTATIN [Concomitant]
     Indication: HYPERLIPIDAEMIA
     Dosage: 10 MG, UNK
     Route: 048
  7. TELMISARTAN [Concomitant]
     Indication: HYPERTENSION
     Dosage: UNK
     Route: 048

REACTIONS (5)
  - Endometrial hyperplasia [Unknown]
  - Leiomyoma [Unknown]
  - Vomiting [Recovered/Resolved]
  - Nausea [Recovered/Resolved]
  - Abdominal pain [Recovered/Resolved]
